FAERS Safety Report 12616417 (Version 3)
Quarter: 2016Q4

REPORT INFORMATION
  Report Type: Spontaneous
  Country: US (occurrence: US)
  Receive Date: 20160802
  Receipt Date: 20161108
  Transmission Date: 20170207
  Serious: No
  Sender: FDA-Public Use
  Company Number: US-PFIZER INC-3108765

PATIENT
  Sex: Male

DRUGS (3)
  1. VANCOMYCIN HCL [Suspect]
     Active Substance: VANCOMYCIN HYDROCHLORIDE
     Indication: OSTEOMYELITIS
     Dosage: 1 G, UNK
     Route: 042
     Dates: start: 20151103, end: 20151211
  2. CEFTIN [Suspect]
     Active Substance: CEFUROXIME AXETIL
     Indication: OSTEOMYELITIS
     Dosage: 2 G, UNK
     Dates: start: 20151103, end: 20151211
  3. SODIUM CHLORIDE. [Suspect]
     Active Substance: SODIUM CHLORIDE
     Indication: OSTEOMYELITIS
     Dosage: 100 ML, UNK
     Route: 042
     Dates: start: 20151103, end: 20151211

REACTIONS (1)
  - Red man syndrome [Recovered/Resolved]

NARRATIVE: CASE EVENT DATE: 20151119
